FAERS Safety Report 7595881-7 (Version None)
Quarter: 2011Q3

REPORT INFORMATION
  Report Type: 
  Country: None (occurrence: None)
  Receive Date: 20110707
  Receipt Date: 20110628
  Transmission Date: 20111222
  Serious: Yes (Other)
  Sender: FDA-Public Use
  Company Number: PHHY2011DK57938

PATIENT
  Sex: Female
  Weight: 46 kg

DRUGS (1)
  1. CITALOPRAM [Suspect]
     Indication: DEPRESSION
     Dosage: 20 MG, QD
     Route: 048
     Dates: start: 20061123

REACTIONS (3)
  - MATERNAL EXPOSURE DURING PREGNANCY [None]
  - ARTERIAL THROMBOSIS [None]
  - INTRA-UTERINE DEATH [None]
